FAERS Safety Report 25051525 (Version 4)
Quarter: 2025Q2

REPORT INFORMATION
  Report Type: Spontaneous
  Country: US (occurrence: US)
  Receive Date: 20250307
  Receipt Date: 20250409
  Transmission Date: 20250717
  Serious: No
  Sender: PFIZER
  Company Number: US-PFIZER INC-202500048237

PATIENT
  Age: 17 Year
  Sex: Male

DRUGS (3)
  1. GENOTROPIN [Suspect]
     Active Substance: SOMATROPIN
     Dosage: 3MG ALTERNATING WITH 3.2MG DAILY
  2. GENOTROPIN [Suspect]
     Active Substance: SOMATROPIN
     Dosage: 3MG ALTERNATING WITH 3.2MG DAILY
  3. GENOTROPIN [Suspect]
     Active Substance: SOMATROPIN

REACTIONS (2)
  - Device information output issue [Unknown]
  - Drug dose omission by device [Unknown]
